FAERS Safety Report 21045699 (Version 3)
Quarter: 2022Q4

REPORT INFORMATION
  Report Type: Report from Study
  Country: US (occurrence: US)
  Receive Date: 20220706
  Receipt Date: 20221230
  Transmission Date: 20230113
  Serious: Yes (Hospitalization, Other)
  Sender: FDA-Public Use
  Company Number: US-ABBVIE-22K-163-4456778-00

PATIENT
  Age: 77 Year
  Sex: Female

DRUGS (4)
  1. SKYRIZI [Suspect]
     Active Substance: RISANKIZUMAB-RZAA
     Indication: Psoriatic arthropathy
     Dosage: FIRST ADMINISTRATION DATE WAS 2022
     Route: 058
  2. SKYRIZI [Suspect]
     Active Substance: RISANKIZUMAB-RZAA
     Indication: Psoriasis
     Dosage: WEEK 0,?FORM STRENGTH: 150 MILLIGRAM
     Route: 058
     Dates: start: 20220402, end: 20220402
  3. SKYRIZI [Suspect]
     Active Substance: RISANKIZUMAB-RZAA
     Dosage: WEEK 4,?FORM STRENGTH: 150 MILLIGRAM?FIRST ADMINISTRATION DATE WAS 2022?LAST ADMINISTRATION DATE ...
     Route: 058
  4. SKYRIZI [Suspect]
     Active Substance: RISANKIZUMAB-RZAA
     Dosage: FORM STRENGTH: 150 MILLIGRAM?FIRST ADMINISTRATION DATE WAS 2022?LAST ADMINISTRATION DATE WAS 2022
     Route: 058

REACTIONS (7)
  - Hand fracture [Recovered/Resolved]
  - Hand fracture [Unknown]
  - Fall [Unknown]
  - Hip fracture [Recovered/Resolved]
  - Psoriatic arthropathy [Unknown]
  - Colitis ulcerative [Unknown]
  - Psoriasis [Unknown]

NARRATIVE: CASE EVENT DATE: 20220622
